FAERS Safety Report 6959322-2 (Version None)
Quarter: 2010Q3

REPORT INFORMATION
  Report Type: 
  Country: None (occurrence: None)
  Receive Date: 20100831
  Receipt Date: 20091207
  Transmission Date: 20110219
  Serious: Yes (Other)
  Sender: FDA-Public Use
  Company Number: PHHY2009AU55920

PATIENT
  Age: 23 Year
  Sex: Female

DRUGS (6)
  1. IMATINIB [Suspect]
     Indication: GASTROINTESTINAL STROMAL TUMOUR
     Dosage: 400 MG/DAY
  2. IMATINIB [Suspect]
     Dosage: 400 MG/DAY
  3. IMATINIB [Suspect]
     Dosage: 400 MG, QW3
  4. IMATINIB [Suspect]
     Dosage: 400 MG/DAY
  5. NEUPOGEN [Concomitant]
  6. EPOETIN ALFA [Concomitant]

REACTIONS (2)
  - ABORTION SPONTANEOUS [None]
  - DRUG EXPOSURE DURING PREGNANCY [None]
